FAERS Safety Report 5108522-5 (Version None)
Quarter: 2006Q3

REPORT INFORMATION
  Report Type: 
  Country: None (occurrence: None)
  Receive Date: 20060914
  Receipt Date: 20060825
  Transmission Date: 20061208
  Serious: No
  Sender: FDA-Public Use
  Company Number: 6024641

PATIENT
  Age: 41 Year
  Sex: Female

DRUGS (1)
  1. PAROXEDURA (PAROXETINE) [Suspect]
     Indication: DEPRESSION
     Dosage: 20,000 MG (20 MG, 1 IN 1 D)
     Route: 048
     Dates: end: 20060728

REACTIONS (1)
  - ELECTROCARDIOGRAM QT PROLONGED [None]
